FAERS Safety Report 8282534-5 (Version None)
Quarter: 2012Q2

REPORT INFORMATION
  Report Type: 
  Country: None (occurrence: None)
  Receive Date: 20120413
  Receipt Date: 20120406
  Transmission Date: 20120825
  Serious: Yes (Hospitalization, Other)
  Sender: FDA-Public Use
  Company Number: US-ROCHE-1057701

PATIENT
  Sex: Female

DRUGS (3)
  1. ADALIMUMAB [Suspect]
  2. METHOTREXATE [Suspect]
  3. MABTHERA [Suspect]
     Indication: RHEUMATOID ARTHRITIS
     Dosage: LAST INFUSION: JAN/2012
     Route: 042

REACTIONS (5)
  - PNEUMONIA [None]
  - BACK PAIN [None]
  - PELVIC PAIN [None]
  - SINUSITIS [None]
  - PANCREATITIS ACUTE [None]
